FAERS Safety Report 11880411 (Version 1)
Quarter: 2015Q4

REPORT INFORMATION
  Report Type: Report from Study
  Country: NZ (occurrence: NZ)
  Receive Date: 20151230
  Receipt Date: 20151230
  Transmission Date: 20160305
  Serious: Yes (Other)
  Sender: FDA-Public Use
  Company Number: NZ-ABBVIE-15K-118-1407919-00

PATIENT
  Sex: Male

DRUGS (1)
  1. HUMIRA [Suspect]
     Active Substance: ADALIMUMAB
     Indication: ANKYLOSING SPONDYLITIS
     Route: 065
     Dates: end: 201509

REACTIONS (8)
  - Influenza [Unknown]
  - Influenza [Recovered/Resolved]
  - Sputum discoloured [Unknown]
  - Fatigue [Not Recovered/Not Resolved]
  - Respiratory tract infection [Unknown]
  - Pulmonary fibrosis [Unknown]
  - Stress [Unknown]
  - Bronchiectasis [Unknown]

NARRATIVE: CASE EVENT DATE: 2015
